FAERS Safety Report 16142138 (Version 1)
Quarter: 2019Q2

REPORT INFORMATION
  Report Type: Spontaneous
  Country: US (occurrence: US)
  Receive Date: 20190401
  Receipt Date: 20190401
  Transmission Date: 20190711
  Serious: No
  Sender: FDA-Public Use
  Company Number: US-SA-2019SA083413

PATIENT
  Age: 87 Year
  Sex: Female

DRUGS (4)
  1. TOUJEO [Suspect]
     Active Substance: INSULIN GLARGINE
     Dosage: 35 UNITS IN THE MORNING AND 10 UNITS IN THE EVENING
     Route: 065
  2. TOUJEO [Suspect]
     Active Substance: INSULIN GLARGINE
     Dosage: 5 U, HS
     Route: 065
     Dates: start: 201812
  3. TOUJEO [Suspect]
     Active Substance: INSULIN GLARGINE
     Dosage: 25 U, HS
     Route: 065
  4. TOUJEO [Suspect]
     Active Substance: INSULIN GLARGINE
     Dosage: 45 U, HS
     Route: 065

REACTIONS (2)
  - Blood glucose fluctuation [Recovering/Resolving]
  - Off label use [Unknown]
